FAERS Safety Report 4699544-7 (Version None)
Quarter: 2005Q2

REPORT INFORMATION
  Report Type: 
  Country: None (occurrence: None)
  Receive Date: 20050622
  Receipt Date: 20050620
  Transmission Date: 20051028
  Serious: Yes (Hospitalization)
  Sender: FDA-Public Use
  Company Number: TCI2005A02849

PATIENT
  Age: 80 Year
  Sex: Male

DRUGS (2)
  1. LEUPROLIDE ACETATE [Suspect]
     Indication: PROSTATE CANCER
     Dosage: 11.25 MG (11.25 MG, 1 IN 12 WK) SUBCUTANEOUS
     Route: 058
     Dates: start: 20050201
  2. ESTRACYT (ESTRAMUSTINE PHOSPHATE SODIUM) (CAPSULES) [Concomitant]

REACTIONS (7)
  - CONDITION AGGRAVATED [None]
  - DRUG EFFECT DECREASED [None]
  - INJECTION SITE INDURATION [None]
  - INJECTION SITE SWELLING [None]
  - PROSTATE CANCER [None]
  - RECTAL TENESMUS [None]
  - URINARY RETENTION [None]
